FAERS Safety Report 9274601 (Version 1)
Quarter: 2013Q2

REPORT INFORMATION
  Report Type: Spontaneous
  Country: US (occurrence: None)
  Receive Date: 20130429
  Receipt Date: 20130429
  Transmission Date: 20140414
  Serious: Yes (Life-Threatening, Hospitalization)
  Sender: FDA-Public Use
  Company Number: 001518138A

PATIENT
  Age: 62 Year
  Sex: Male

DRUGS (7)
  1. SUPERSMILE PROFESSIONAL WHITENING [Suspect]
     Dosage: ONE APPLICATION
     Route: 048
     Dates: start: 20130304
  2. LISINOPRIL [Concomitant]
  3. METOPROLOL [Concomitant]
  4. HYDROCHLORTHIAZIDE [Concomitant]
  5. ALBUTEROL INHALER [Concomitant]
  6. NITROSTAT [Concomitant]
  7. VITAMINS [Concomitant]

REACTIONS (1)
  - Anaphylactic reaction [None]
